FAERS Safety Report 9372181 (Version 1)
Quarter: 2013Q2

REPORT INFORMATION
  Report Type: Report from Study
  Country: US (occurrence: US)
  Receive Date: 20130627
  Receipt Date: 20130627
  Transmission Date: 20140414
  Serious: Yes (Death)
  Sender: FDA-Public Use
  Company Number: US-MYLANLABS-2012S1016583

PATIENT
  Age: 54 Year
  Sex: Male
  Weight: 88.91 kg

DRUGS (1)
  1. CLOZAPINE TABLETS [Suspect]
     Indication: SCHIZOPHRENIA
     Dates: start: 20120523, end: 20120620

REACTIONS (2)
  - Myocardial infarction [Fatal]
  - Confusional state [Unknown]
